FAERS Safety Report 14485009 (Version 3)
Quarter: 2018Q1

REPORT INFORMATION
  Report Type: Spontaneous
  Country: US (occurrence: US)
  Receive Date: 20180205
  Receipt Date: 20180322
  Transmission Date: 20180509
  Serious: No
  Sender: FDA-Public Use
  Company Number: US-PFIZER INC-2018043510

PATIENT
  Age: 63 Year
  Sex: Female
  Weight: 88 kg

DRUGS (2)
  1. XELJANZ [Suspect]
     Active Substance: TOFACITINIB CITRATE
     Indication: RHEUMATOID ARTHRITIS
     Dosage: 5 MG, TWICE DAILY (MAY BE TAKEN WITH OR WITHOUT FOOD)
     Route: 048
     Dates: start: 201712
  2. PREDNISONE. [Concomitant]
     Active Substance: PREDNISONE
     Indication: PAIN
     Dosage: 5 MG, AS NEEDED (HAS BEEN TAKING FOR 4-5 YEARS)

REACTIONS (2)
  - Nasopharyngitis [Recovering/Resolving]
  - Sinus congestion [Unknown]

NARRATIVE: CASE EVENT DATE: 2018
